FAERS Safety Report 14478278 (Version 2)
Quarter: 2018Q1

REPORT INFORMATION
  Report Type: Spontaneous
  Country: US (occurrence: US)
  Receive Date: 20180202
  Receipt Date: 20180330
  Transmission Date: 20180509
  Serious: No
  Sender: FDA-Public Use
  Company Number: US-TEVA-2018-US-854961

PATIENT
  Sex: Male

DRUGS (2)
  1. FENTANYL. [Suspect]
     Active Substance: FENTANYL
     Indication: SPINAL PAIN
     Route: 062
     Dates: start: 2015
  2. FENTANYL. [Suspect]
     Active Substance: FENTANYL
     Indication: BACK PAIN

REACTIONS (1)
  - Therapeutic response decreased [Not Recovered/Not Resolved]
